FAERS Safety Report 4829410-5 (Version None)
Quarter: 2005Q4

REPORT INFORMATION
  Report Type: 
  Country: None (occurrence: None)
  Receive Date: 20051028
  Receipt Date: 20050715
  Transmission Date: 20060501
  Serious: No
  Sender: FDA-Public Use
  Company Number: US142911

PATIENT
  Age: 47 Year

DRUGS (11)
  1. SENSIPAR [Suspect]
     Indication: HYPERPARATHYROIDISM SECONDARY
     Dosage: 30 MG, 1 IN 1 DAYS, PO
     Route: 048
     Dates: start: 20041201
  2. PRAVASTATIN SODIUM [Concomitant]
  3. PARICALCITOL [Concomitant]
  4. LISINOPRIL [Concomitant]
  5. CARVEDILOL [Concomitant]
  6. SEVELAMER HCL [Concomitant]
  7. PHOSLO [Concomitant]
  8. NEPHRO-CAPS [Concomitant]
  9. FERRLECIT TABLET [Concomitant]
  10. CLOPIDOGREL BISULFATE [Concomitant]
  11. EPOGEN (EPOETIN ALFA) (EPOETIN ALFA) [Concomitant]

REACTIONS (1)
  - ARTERIOVENOUS GRAFT THROMBOSIS [None]
